FAERS Safety Report 4659187-8 (Version None)
Quarter: 2005Q2

REPORT INFORMATION
  Report Type: 
  Country: None (occurrence: None)
  Receive Date: 20050510
  Receipt Date: 20050428
  Transmission Date: 20051028
  Serious: Yes (Other)
  Sender: FDA-Public Use
  Company Number: S05-USA-02325-01

PATIENT
  Age: 49 Year
  Sex: Female

DRUGS (3)
  1. LEXAPRO [Suspect]
     Indication: DEPRESSION
     Dosage: 5 MG QD PO
     Route: 048
     Dates: start: 20050101, end: 20050301
  2. LEXAPRO [Suspect]
     Indication: DEPRESSION
     Dosage: 5 MG QD PO
     Route: 048
     Dates: start: 20050301, end: 20050408
  3. CALCIUM GLUCONATE [Concomitant]

REACTIONS (6)
  - ANAEMIA [None]
  - BREAST MASS [None]
  - INCREASED TENDENCY TO BRUISE [None]
  - MENORRHAGIA [None]
  - NASOPHARYNGITIS [None]
  - THROMBOSIS [None]
